FAERS Safety Report 24323837 (Version 1)
Quarter: 2024Q3

REPORT INFORMATION
  Report Type: Spontaneous
  Country: GB (occurrence: GB)
  Receive Date: 20240916
  Receipt Date: 20240916
  Transmission Date: 20241017
  Serious: Yes (Other)
  Sender: TEVA
  Company Number: GB-MHRA-TPP14815718C9405995YC1725541081820

PATIENT
  Age: 91 Year
  Sex: Male
  Weight: 61 kg

DRUGS (20)
  1. CLARITHROMYCIN [Suspect]
     Active Substance: CLARITHROMYCIN
     Route: 065
     Dates: start: 20230605
  2. ATORVASTATIN [Concomitant]
     Active Substance: ATORVASTATIN
     Indication: Blood cholesterol
     Dosage: EACH NIGHT (TO HELP REDUCE CHOLESTEROL...
     Dates: start: 20240425
  3. AYMES SHAKE [Concomitant]
     Indication: Ill-defined disorder
     Dosage: USE AS DIRECTED. USE TWO SACHETS DAILY. ADD TO ..., AYMES SHAKE COMPACT, TPP YC - PLEASE RECLASSIFY
     Dates: start: 20240902
  4. FUROSEMIDE [Concomitant]
     Active Substance: FUROSEMIDE
     Dosage: EACH MORNING (WATER TABLET)
     Dates: start: 20240425
  5. LANSOPRAZOLE [Concomitant]
     Active Substance: LANSOPRAZOLE
     Dates: start: 20240703
  6. TAMSULOSIN HYDROCHLORIDE [Concomitant]
     Active Substance: TAMSULOSIN HYDROCHLORIDE
     Dates: start: 20240425
  7. FINASTERIDE [Concomitant]
     Active Substance: FINASTERIDE
     Dates: start: 20240425
  8. OILATUM [Concomitant]
     Dosage: APPLY TO WET SKIN AND RINSE
     Dates: start: 20240425
  9. PARAFFIN\WAX, EMULSIFYING [Concomitant]
     Active Substance: PARAFFIN\WAX, EMULSIFYING
     Dosage: USE AS DIRECTED
     Dates: start: 20240425
  10. CARBOMER [Concomitant]
     Active Substance: CARBOMER
     Dosage: USE FOUR TIMES DAILY AS DIRECTED
     Dates: start: 20240425
  11. EMPAGLIFLOZIN [Concomitant]
     Active Substance: EMPAGLIFLOZIN
     Indication: Diabetes mellitus
     Dates: start: 20240425
  12. MINERAL OIL\PETROLATUM\WAX, EMULSIFYING [Concomitant]
     Active Substance: MINERAL OIL\PETROLATUM\WAX, EMULSIFYING
     Dosage: USE AS DIRECTED
     Dates: start: 20240425
  13. BECLOMETHASONE\FORMOTEROL [Concomitant]
     Active Substance: BECLOMETHASONE\FORMOTEROL
     Dosage: PUFF AS REQUIRED MAXIMUM 8 PUFF SIN T...
     Dates: start: 20240425
  14. ENALAPRIL [Concomitant]
     Active Substance: ENALAPRIL
     Dates: start: 20240425
  15. GABAPENTIN [Concomitant]
     Active Substance: GABAPENTIN
     Dates: start: 20240425
  16. TICAGRELOR [Concomitant]
     Active Substance: TICAGRELOR
     Dosage: FOR 12 MONTHS - END DATE...
     Dates: start: 20240425
  17. GAVISCON [Concomitant]
     Active Substance: ALUMINUM HYDROXIDE\MAGNESIUM CARBONATE
     Dates: start: 20240703
  18. BISOPROLOL [Concomitant]
     Active Substance: BISOPROLOL\BISOPROLOL FUMARATE
     Dates: start: 20240425
  19. APIXABAN [Concomitant]
     Active Substance: APIXABAN
     Dates: start: 20240425
  20. CLOBETASOL PROPIONATE [Concomitant]
     Active Substance: CLOBETASOL PROPIONATE
     Dosage: APPLY 1-2 TIMES/DAY
     Dates: start: 20240626

REACTIONS (2)
  - Swollen tongue [Recovered/Resolved]
  - Dysgeusia [Recovered/Resolved]
